FAERS Safety Report 9678248 (Version 1)
Quarter: 2013Q4

REPORT INFORMATION
  Report Type: Spontaneous
  Country: US (occurrence: None)
  Receive Date: 20131106
  Receipt Date: 20131106
  Transmission Date: 20140711
  Serious: Yes (Hospitalization)
  Sender: FDA-Public Use
  Company Number: 1969253

PATIENT
  Age: 36 Year
  Sex: Female
  Weight: 60 kg

DRUGS (5)
  1. LIDOCAINE HCL [Suspect]
     Indication: CERVIX CAUTERY
     Route: 019
     Dates: start: 20131015
  2. BUSPIRONE [Concomitant]
  3. SYNTHROID [Concomitant]
  4. TOPAMAX [Concomitant]
  5. NADOLOL [Concomitant]

REACTIONS (5)
  - Blood pressure increased [None]
  - Tachycardia [None]
  - Chest pain [None]
  - Cardiac enzymes increased [None]
  - Headache [None]
